FAERS Safety Report 5655757-9 (Version None)
Quarter: 2008Q1

REPORT INFORMATION
  Report Type: 
  Country: None (occurrence: None)
  Receive Date: 20080307
  Receipt Date: 20080226
  Transmission Date: 20080703
  Serious: Yes (Other)
  Sender: FDA-Public Use
  Company Number: FR-PFIZER INC-2007085357

PATIENT
  Sex: Female
  Weight: 98 kg

DRUGS (1)
  1. SUTENT [Suspect]
     Indication: RENAL CANCER METASTATIC

REACTIONS (8)
  - AGEUSIA [None]
  - BURNING SENSATION [None]
  - CONJUNCTIVITIS [None]
  - FACE OEDEMA [None]
  - HYPERTRIGLYCERIDAEMIA [None]
  - HYPOTHYROIDISM [None]
  - PERIORBITAL OEDEMA [None]
  - STOMATITIS [None]
